FAERS Safety Report 9760394 (Version 2)
Quarter: 2013Q4

REPORT INFORMATION
  Report Type: Spontaneous
  Country: US (occurrence: US)
  Receive Date: 20131216
  Receipt Date: 20131216
  Transmission Date: 20140711
  Serious: No
  Sender: FDA-Public Use
  Company Number: US-GILEAD-2010-0029379

PATIENT
  Age: 74 Year
  Sex: Female
  Weight: 63.6 kg

DRUGS (16)
  1. LETAIRIS [Suspect]
     Indication: PULMONARY ARTERIAL HYPERTENSION
     Route: 048
     Dates: start: 20100216, end: 201007
  2. CENTRUM SILVER [Concomitant]
  3. CALTRATE +D [Concomitant]
  4. LASIX [Concomitant]
  5. AZATHIOPRINE [Concomitant]
  6. SYNTHROID [Concomitant]
  7. LOTREL [Concomitant]
  8. RECLAST [Concomitant]
  9. HYDROXYCHOLR [Concomitant]
  10. FLONASE [Concomitant]
  11. NEXIUM [Concomitant]
  12. KLOR-CON M20 [Concomitant]
  13. ARIMIDEX [Concomitant]
  14. MIRALAX [Concomitant]
  15. ADVIL [Concomitant]
  16. BABY ASPIRIN [Concomitant]

REACTIONS (3)
  - Oral mucosal erythema [Not Recovered/Not Resolved]
  - Lip swelling [Not Recovered/Not Resolved]
  - Hypersensitivity [Unknown]
